FAERS Safety Report 6383222-2 (Version None)
Quarter: 2009Q3

REPORT INFORMATION
  Report Type: 
  Country: None (occurrence: None)
  Receive Date: 20090929
  Receipt Date: 20090923
  Transmission Date: 20100115
  Serious: Yes (Hospitalization)
  Sender: FDA-Public Use
  Company Number: 1-20004690

PATIENT
  Age: 55 Year
  Sex: Female

DRUGS (2)
  1. DICLOFENAC SODIUM [Suspect]
     Indication: TENDONITIS
     Dosage: 75 MG, ONCE, ORAL
     Route: 048
     Dates: start: 20090904, end: 20090904
  2. BENADRYL [Concomitant]

REACTIONS (11)
  - ASTHENIA [None]
  - BURNING SENSATION [None]
  - CORONARY ARTERIAL STENT INSERTION [None]
  - DYSPNOEA [None]
  - HEAD INJURY [None]
  - IMPAIRED WORK ABILITY [None]
  - LOSS OF CONSCIOUSNESS [None]
  - PHARYNGEAL OEDEMA [None]
  - PRURITUS [None]
  - SWELLING [None]
  - WEIGHT INCREASED [None]
